FAERS Safety Report 16259952 (Version 1)
Quarter: 2019Q2

REPORT INFORMATION
  Report Type: Spontaneous
  Country: US (occurrence: US)
  Receive Date: 20190430
  Receipt Date: 20190430
  Transmission Date: 20190711
  Serious: Yes (Disabling)
  Sender: FDA-Public Use
  Company Number: None

PATIENT
  Age: 46 Year
  Sex: Female
  Weight: 57.6 kg

DRUGS (1)
  1. GADOLINIUM MACROCYCLIC [Suspect]
     Active Substance: GADOLINIUM
     Indication: NUCLEAR MAGNETIC RESONANCE IMAGING
     Dosage: ?          OTHER ROUTE:INJECTED INTO BOTH HIPS?
     Dates: start: 20161228, end: 20161229

REACTIONS (17)
  - Contrast media toxicity [None]
  - Neuralgia [None]
  - Muscle spasms [None]
  - Night sweats [None]
  - Headache [None]
  - Urinary tract infection [None]
  - Dizziness [None]
  - Ulcer [None]
  - Gastric haemorrhage [None]
  - Vomiting [None]
  - Tinnitus [None]
  - Throat irritation [None]
  - Irritable bowel syndrome [None]
  - Gait inability [None]
  - Pain [None]
  - Insomnia [None]
  - Nausea [None]

NARRATIVE: CASE EVENT DATE: 20161228
